FAERS Safety Report 7259002-2 (Version None)
Quarter: 2011Q1

REPORT INFORMATION
  Report Type: 
  Country: None (occurrence: None)
  Receive Date: 20110129
  Receipt Date: 20100623
  Transmission Date: 20110831
  Serious: No
  Sender: FDA-Public Use
  Company Number: US-ABBOTT-10P-163-0653201-00

PATIENT
  Age: 57 Year
  Sex: Female

DRUGS (4)
  1. PREDNISONE [Concomitant]
     Indication: PRODUCT USED FOR UNKNOWN INDICATION
     Dosage: TAPERING FOR FLARE UP
     Route: 048
  2. TOPROL-XL [Concomitant]
     Indication: ARRHYTHMIA
     Route: 048
  3. IMURAN [Concomitant]
     Indication: COLITIS
     Route: 048
  4. HUMIRA [Suspect]
     Indication: CROHN'S DISEASE
     Dates: start: 20100309

REACTIONS (3)
  - SUPERFICIAL VEIN PROMINENCE [None]
  - PAIN IN EXTREMITY [None]
  - MUSCLE SPASMS [None]
